FAERS Safety Report 6262525-6 (Version None)
Quarter: 2009Q3

REPORT INFORMATION
  Report Type: 
  Country: None (occurrence: None)
  Receive Date: 20090709
  Receipt Date: 20090701
  Transmission Date: 20100115
  Serious: Yes (Life-Threatening)
  Sender: FDA-Public Use
  Company Number: IT-ELI_LILLY_AND_COMPANY-IT200907000131

PATIENT
  Sex: Female

DRUGS (2)
  1. HUMALOG [Suspect]
     Indication: DIABETES MELLITUS
     Dosage: 14 IU, DAILY (1/D)
     Route: 058
     Dates: start: 20080101, end: 20090522
  2. HUMULIN N [Concomitant]
     Indication: DIABETES MELLITUS
     Dosage: 10 IU, UNK
     Route: 058
     Dates: start: 20080101, end: 20090521

REACTIONS (2)
  - HYPOGLYCAEMIA [None]
  - SOPOR [None]
